FAERS Safety Report 18359962 (Version 2)
Quarter: 2020Q4

REPORT INFORMATION
  Report Type: Spontaneous
  Country: FR (occurrence: FR)
  Receive Date: 20201008
  Receipt Date: 20201020
  Transmission Date: 20210114
  Serious: Yes (Life-Threatening)
  Sender: FDA-Public Use
  Company Number: FR-PFIZER INC-2020384160

PATIENT
  Age: 37 Year
  Sex: Male

DRUGS (2)
  1. ATRACURIUM BESILATE [Suspect]
     Active Substance: ATRACURIUM BESYLATE
     Indication: SURGERY
     Dosage: 1 DF, SINGLE
     Route: 042
     Dates: start: 20200916, end: 20200916
  2. MIDAZOLAM. [Concomitant]
     Active Substance: MIDAZOLAM
     Dosage: NOT ADMINISTERED

REACTIONS (4)
  - Product label issue [Recovered/Resolved]
  - Respiratory distress [Recovered/Resolved]
  - Wrong product administered [Recovered/Resolved]
  - Agitation [Recovered/Resolved]

NARRATIVE: CASE EVENT DATE: 20200916
